FAERS Safety Report 8561066-0 (Version None)
Quarter: 2012Q3

REPORT INFORMATION
  Report Type: 
  Country: None (occurrence: None)
  Receive Date: 20120802
  Receipt Date: 20120120
  Transmission Date: 20120928
  Serious: No
  Sender: FDA-Public Use
  Company Number: US-BRISTOL-MYERS SQUIBB COMPANY-16362691

PATIENT
  Sex: Male

DRUGS (3)
  1. REYATAZ [Suspect]
     Route: 048
     Dates: start: 20050101
  2. NORVIR [Suspect]
     Route: 048
  3. TRUVADA [Suspect]
     Route: 048

REACTIONS (1)
  - HEPATIC STEATOSIS [None]
